FAERS Safety Report 15108512 (Version 1)
Quarter: 2018Q3

REPORT INFORMATION
  Report Type: Spontaneous
  Country: US (occurrence: US)
  Receive Date: 20180705
  Receipt Date: 20180705
  Transmission Date: 20181010
  Serious: No
  Sender: FDA-Public Use
  Company Number: US-UNITED THERAPEUTICS-UNT-2018-009789

PATIENT
  Age: 73 Year
  Sex: Female
  Weight: 78.5 kg

DRUGS (1)
  1. REMODULIN [Suspect]
     Active Substance: TREPROSTINIL
     Indication: PULMONARY HYPERTENSION
     Dosage: 0.032 ?G/KG, CONTINUING
     Route: 058
     Dates: start: 20150903

REACTIONS (3)
  - Respiratory tract congestion [Unknown]
  - Ear pain [Unknown]
  - Cough [Unknown]

NARRATIVE: CASE EVENT DATE: 201806
